FAERS Safety Report 9000594 (Version 1)
Quarter: 2013Q1

REPORT INFORMATION
  Report Type: Spontaneous
  Country: US (occurrence: US)
  Receive Date: 20130107
  Receipt Date: 20130107
  Transmission Date: 20140127
  Serious: No
  Sender: FDA-Public Use
  Company Number: US-PFIZER INC-2013002249

PATIENT
  Sex: Female

DRUGS (2)
  1. PROPANOLOL HCL [Suspect]
     Indication: MIGRAINE
     Dosage: 80 MG,UNK
     Route: 048
  2. PROPANOLOL HCL [Suspect]
     Indication: HYPERTENSION

REACTIONS (1)
  - Drug ineffective [Unknown]
